FAERS Safety Report 4956467-3 (Version None)
Quarter: 2006Q1

REPORT INFORMATION
  Report Type: 
  Country: None (occurrence: None)
  Receive Date: 20060328
  Receipt Date: 20060328
  Transmission Date: 20060701
  Serious: Yes (Life-Threatening, Hospitalization)
  Sender: FDA-Public Use
  Company Number: None

PATIENT
  Age: 16 Year
  Sex: Female

DRUGS (2)
  1. LAMICTAL [Suspect]
     Indication: MOOD SWINGS
     Dosage: 25 MG Q AM PO
     Route: 048
     Dates: start: 20060127, end: 20060216
  2. LAMICTAL [Suspect]
     Indication: MOOD SWINGS
     Dosage: 50 MG QHS PO
     Route: 048
     Dates: start: 20060215, end: 20060216

REACTIONS (3)
  - LIP HAEMORRHAGE [None]
  - STEVENS-JOHNSON SYNDROME [None]
  - SWELLING FACE [None]
